FAERS Safety Report 6233322-2 (Version None)
Quarter: 2009Q2

REPORT INFORMATION
  Report Type: 
  Country: None (occurrence: None)
  Receive Date: 20090616
  Receipt Date: 20090616
  Transmission Date: 20091009
  Serious: No
  Sender: FDA-Public Use
  Company Number: None

PATIENT
  Age: 77 Year
  Sex: Male
  Weight: 81.73 kg

DRUGS (2)
  1. MORPHINE [Suspect]
     Dosage: 15 MG TID PO
     Route: 048
     Dates: start: 20090122, end: 20090131
  2. OXYCODONE HCL [Suspect]
     Dosage: 5-10 MG PRN PO
     Route: 048
     Dates: start: 20081231, end: 20090131

REACTIONS (1)
  - ILEUS [None]
